FAERS Safety Report 5805793-4 (Version None)
Quarter: 2008Q3

REPORT INFORMATION
  Report Type: 
  Country: None (occurrence: None)
  Receive Date: 20080702
  Receipt Date: 20070705
  Transmission Date: 20090109
  Serious: Yes (Other)
  Sender: FDA-Public Use
  Company Number: 2006-BP-13051BP

PATIENT
  Age: 82 Year
  Sex: Male

DRUGS (9)
  1. MIRAPEX [Suspect]
     Indication: PARKINSON'S DISEASE
     Dosage: 3 MG (1 MG,3 IN 1 D),PO
     Route: 048
  2. KLOR-CON [Suspect]
  3. SINEMET [Concomitant]
  4. LASIX [Concomitant]
  5. POTASSIUM (POTASSIUM) [Concomitant]
  6. METOLAZONE [Concomitant]
  7. CAPTOPRIL [Concomitant]
  8. ASPIRIN [Concomitant]
  9. HYDROCHLOROTHIAZIDE [Concomitant]

REACTIONS (7)
  - CONSTIPATION [None]
  - DIPLOPIA [None]
  - FATIGUE [None]
  - PROSTATE CANCER [None]
  - SOMNOLENCE [None]
  - THIRST [None]
  - VISION BLURRED [None]
